FAERS Safety Report 5118310-1 (Version None)
Quarter: 2006Q3

REPORT INFORMATION
  Report Type: 
  Country: None (occurrence: None)
  Receive Date: 20060926
  Receipt Date: 20060912
  Transmission Date: 20061208
  Serious: Yes (Hospitalization)
  Sender: FDA-Public Use
  Company Number: JP200609004252

PATIENT
  Age: 69 Year
  Sex: Female

DRUGS (2)
  1. GEMZAR [Suspect]
     Indication: PANCREATIC CARCINOMA NON-RESECTABLE
     Dosage: 250 MG/M2, OTHER, INTRAVENOUS
     Route: 042
  2. THERAPEUTIC RADIOPHARMACEUTICALS [Concomitant]

REACTIONS (1)
  - GASTRIC ULCER HAEMORRHAGE [None]
